FAERS Safety Report 11626780 (Version 1)
Quarter: 2015Q4

REPORT INFORMATION
  Report Type: Report from Study
  Country: US (occurrence: US)
  Receive Date: 20151013
  Receipt Date: 20151013
  Transmission Date: 20160304
  Serious: Yes (Other)
  Sender: FDA-Public Use
  Company Number: US-ABBVIE-15P-163-1477141-00

PATIENT
  Age: 29 Year
  Sex: Female

DRUGS (4)
  1. PRENATAL VITAMINS [Concomitant]
     Active Substance: VITAMINS
     Indication: VITAMIN SUPPLEMENTATION
     Route: 048
  2. YASMIN [Concomitant]
     Active Substance: DROSPIRENONE\ETHINYL ESTRADIOL
     Indication: PRODUCT USED FOR UNKNOWN INDICATION
     Dates: start: 201305
  3. CLOMID [Concomitant]
     Active Substance: CLOMIPHENE CITRATE
     Indication: PREGNANCY
  4. LUPRON DEPOT [Suspect]
     Active Substance: LEUPROLIDE ACETATE
     Indication: ENDOMETRIOSIS
     Route: 065
     Dates: start: 20110201, end: 20111101

REACTIONS (13)
  - Pelvic adhesions [Unknown]
  - Menorrhagia [Not Recovered/Not Resolved]
  - Adnexal torsion [Unknown]
  - Pelvic pain [Not Recovered/Not Resolved]
  - Metrorrhagia [Unknown]
  - Scoliosis [Unknown]
  - Uterine prolapse [Unknown]
  - Proctalgia [Unknown]
  - Anorectal discomfort [Unknown]
  - Alopecia [Unknown]
  - Endometriosis [Unknown]
  - Trichorrhexis [Unknown]
  - Pelvic floor muscle weakness [Unknown]

NARRATIVE: CASE EVENT DATE: 201305
